FAERS Safety Report 4607113-X (Version None)
Quarter: 2005Q1

REPORT INFORMATION
  Report Type: 
  Country: None (occurrence: None)
  Receive Date: 20050314
  Receipt Date: 20050228
  Transmission Date: 20050727
  Serious: Yes (Disabling, Other)
  Sender: FDA-Public Use
  Company Number: GBWYE480707MAR05

PATIENT
  Age: 64 Year
  Sex: Female
  Weight: 68.9 kg

DRUGS (5)
  1. ENBREL [Suspect]
     Indication: RHEUMATOID ARTHRITIS
     Dosage: 25MG FREQUENCY UNKNOWN
     Route: 058
     Dates: start: 20031205
  2. METHOTREXATE [Concomitant]
     Dosage: 20MG WEEKLY
     Route: 048
     Dates: start: 20030801
  3. LEVOTHYROXINE SODIUM [Concomitant]
     Route: 048
     Dates: start: 19970101
  4. FOSAMAX [Concomitant]
     Route: 048
     Dates: start: 19990101
  5. OMEPRAZOLE [Concomitant]
     Route: 048
     Dates: start: 20000101

REACTIONS (3)
  - NAIL DISORDER [None]
  - NODULE [None]
  - VASCULITIS [None]
